FAERS Safety Report 17907727 (Version 2)
Quarter: 2020Q2

REPORT INFORMATION
  Report Type: Spontaneous
  Country: US (occurrence: US)
  Receive Date: 20200617
  Receipt Date: 20200623
  Transmission Date: 20200714
  Serious: Yes (Other)
  Sender: FDA-Public Use
  Company Number: US-PFIZER INC-2020231665

PATIENT
  Age: 52 Year
  Sex: Male
  Weight: 82 kg

DRUGS (13)
  1. ATROPINE SULFATE. [Suspect]
     Active Substance: ATROPINE SULFATE
     Dosage: 1.25 MG (OVER FIVE MINUTES.)
     Route: 042
  2. MEPERIDINE [Concomitant]
     Active Substance: MEPERIDINE
     Dosage: 100 MG DIVIDED DOSES
  3. PENTOBARBITAL. [Concomitant]
     Active Substance: PENTOBARBITAL
     Indication: PREMEDICATION
     Dosage: 100 MG
     Route: 030
  4. PANCURONIUM [Concomitant]
     Active Substance: PANCURONIUM
     Indication: ANAESTHESIA
     Dosage: 8 MG
  5. PROPRANOLOL [Concomitant]
     Active Substance: PROPRANOLOL HYDROCHLORIDE
     Indication: ATRIAL TACHYCARDIA
     Dosage: 40 MG
  6. PROPRANOLOL [Concomitant]
     Active Substance: PROPRANOLOL HYDROCHLORIDE
     Indication: SUPRAVENTRICULAR TACHYCARDIA
  7. MEPERIDINE [Concomitant]
     Active Substance: MEPERIDINE
     Indication: PREMEDICATION
     Dosage: 50 MG
     Route: 030
  8. MEPERIDINE [Concomitant]
     Active Substance: MEPERIDINE
     Indication: ANAESTHESIA
     Dosage: 60 MG
  9. THIOPENTAL [Concomitant]
     Active Substance: THIOPENTAL
     Indication: ANAESTHESIA
     Dosage: 250 MG
  10. ATROPINE SULFATE. [Suspect]
     Active Substance: ATROPINE SULFATE
     Dosage: 0.3 MG
     Route: 042
  11. NEOSTIGMINE. [Suspect]
     Active Substance: NEOSTIGMINE METHYLSULFATE
     Indication: ANAESTHESIA
     Dosage: 2.5 MG (OVER FIVE MINUTES)
     Route: 042
  12. ATROPINE SULFATE. [Suspect]
     Active Substance: ATROPINE SULFATE
     Dosage: 3 MG (IN DIVIDED DOSES)
     Route: 042
  13. NITROUS OXIDE. [Concomitant]
     Active Substance: NITROUS OXIDE
     Indication: ANAESTHESIA
     Dosage: 70 %

REACTIONS (1)
  - Bradycardia [Recovered/Resolved]
